FAERS Safety Report 24149564 (Version 1)
Quarter: 2024Q3

REPORT INFORMATION
  Report Type: Report from Study
  Country: US (occurrence: None)
  Receive Date: 20240730
  Receipt Date: 20240730
  Transmission Date: 20241016
  Serious: Yes (Other)
  Sender: ASTRAZENECA
  Company Number: 2020SF12519

PATIENT
  Sex: Female
  Weight: 63.5 kg

DRUGS (6)
  1. SYMBICORT [Suspect]
     Active Substance: BUDESONIDE\FORMOTEROL FUMARATE DIHYDRATE
     Indication: Chronic obstructive pulmonary disease
     Dosage: 160/4.5 MCGS, TWO PUFF EVERY OTHER DAY
     Route: 055
  2. SYMBICORT [Suspect]
     Active Substance: BUDESONIDE\FORMOTEROL FUMARATE DIHYDRATE
     Indication: Emphysema
     Dosage: 160/4.5 MCGS, TWO PUFF EVERY OTHER DAY
     Route: 055
  3. ASPIRIN [Concomitant]
     Active Substance: ASPIRIN
     Indication: Cardiac disorder
     Route: 048
  4. NITROGLYCERIN [Concomitant]
     Active Substance: NITROGLYCERIN
     Indication: Cardiac disorder
     Route: 062
  5. VENTOLIN [Concomitant]
     Active Substance: ALBUTEROL SULFATE
     Indication: Ill-defined disorder
     Dosage: 90UG/INHAL
     Route: 055
  6. ALBUTEROL SULFATE IPRATROPIUM BROMIDE [Concomitant]
     Indication: Chronic obstructive pulmonary disease
     Route: 055

REACTIONS (9)
  - Vascular occlusion [Unknown]
  - Venous occlusion [Unknown]
  - Temperature intolerance [Not Recovered/Not Resolved]
  - Panic attack [Unknown]
  - Chest pain [Unknown]
  - Dyspnoea exertional [Unknown]
  - Product dose omission issue [Unknown]
  - Intentional product misuse [Unknown]
  - Humidity intolerance [Not Recovered/Not Resolved]
